FAERS Safety Report 5815395-1 (Version None)
Quarter: 2008Q3

REPORT INFORMATION
  Report Type: 
  Country: None (occurrence: None)
  Receive Date: 20080718
  Receipt Date: 20080708
  Transmission Date: 20090109
  Serious: Yes (Other)
  Sender: FDA-Public Use
  Company Number: US-PFIZER INC-2008052493

PATIENT
  Sex: Male
  Weight: 144.5 kg

DRUGS (3)
  1. CHANTIX [Suspect]
     Indication: SMOKING CESSATION THERAPY
  2. ZYPREXA [Concomitant]
  3. DEXAMETHASONE [Concomitant]

REACTIONS (4)
  - AGGRESSION [None]
  - ANGER [None]
  - ANXIETY [None]
  - DRUG WITHDRAWAL SYNDROME [None]
